FAERS Safety Report 8339316-5 (Version None)
Quarter: 2012Q2

REPORT INFORMATION
  Report Type: 
  Country: None (occurrence: None)
  Receive Date: 20120507
  Receipt Date: 20120502
  Transmission Date: 20120825
  Serious: Yes (Hospitalization, Other)
  Sender: FDA-Public Use
  Company Number: US-BAYER-2011-021717

PATIENT
  Age: 24 Year
  Sex: Female
  Weight: 56.689 kg

DRUGS (12)
  1. WELLBUTRIN [Concomitant]
     Indication: DEPRESSION
     Dosage: 180 MG, QD
     Route: 048
     Dates: end: 20050301
  2. WELLBUTRIN [Concomitant]
     Dosage: 300 MG, DAILY
     Dates: start: 20060905
  3. BEXTRA [Concomitant]
     Dosage: 20 MG, HS
  4. CLARITIN [Concomitant]
     Indication: SEASONAL ALLERGY
     Dosage: UNK
     Dates: start: 19970101
  5. ALLEGRA-D 12 HOUR [Concomitant]
     Indication: HYPERSENSITIVITY
     Dosage: UNK UNK, QD
     Route: 048
  6. YASMIN [Suspect]
     Indication: CONTRACEPTION
     Dosage: UNK
     Dates: start: 20020601, end: 20050301
  7. NORVASC [Concomitant]
  8. XANAX [Concomitant]
  9. ACETAMINOPHEN [Concomitant]
     Indication: PAIN
     Dosage: 500 MG, PRN
     Route: 048
  10. LOVENOX [Concomitant]
     Indication: ANTIPHOSPHOLIPID SYNDROME
     Dosage: 60 MG, UNK
     Dates: start: 20070209
  11. ASPIRIN [Concomitant]
     Dosage: 81 MG, UNK
     Dates: start: 20060905
  12. COUMADIN [Concomitant]

REACTIONS (3)
  - CEREBROVASCULAR ACCIDENT [None]
  - SUBDURAL HAEMATOMA [None]
  - CONVULSION [None]
